FAERS Safety Report 5915410-0 (Version None)
Quarter: 2008Q4

REPORT INFORMATION
  Report Type: 
  Country: None (occurrence: None)
  Receive Date: 20081009
  Receipt Date: 20081009
  Transmission Date: 20090506
  Serious: Yes (Other)
  Sender: FDA-Public Use
  Company Number: None

PATIENT
  Sex: Male
  Weight: 97.5234 kg

DRUGS (3)
  1. SUMMER GLOW WITH HELIOPLEX SPF 20 MEDIUM TONES NEUTROGENA [Suspect]
     Indication: ACNE
     Dosage: DAILY TOPICAL
     Route: 061
     Dates: start: 20080901, end: 20080930
  2. SUMMER GLOW WITH HELIOPLEX SPF 20 MEDIUM TONES NEUTROGENA [Suspect]
     Indication: RASH ERYTHEMATOUS
     Dosage: DAILY TOPICAL
     Route: 061
     Dates: start: 20080901, end: 20080930
  3. SUMMER GLOW WITH HELIOPLEX SPF 20 MEDIUM TONES NEUTROGENA [Suspect]
     Indication: RASH PRURITIC
     Dosage: DAILY TOPICAL
     Route: 061
     Dates: start: 20080901, end: 20080930

REACTIONS (3)
  - APPLICATION SITE PRURITUS [None]
  - APPLICATION SITE RASH [None]
  - RASH MACULAR [None]
